FAERS Safety Report 10210863 (Version 1)
Quarter: 2014Q2

REPORT INFORMATION
  Report Type: Spontaneous
  Country: US (occurrence: None)
  Receive Date: 20140530
  Receipt Date: 20140530
  Transmission Date: 20141212
  Serious: Yes (Other)
  Sender: FDA-Public Use
  Company Number: None

PATIENT
  Age: 28 Year
  Sex: Female

DRUGS (1)
  1. MAKENA [Suspect]
     Indication: PREGNANCY
     Route: 030
     Dates: start: 20130423, end: 20140522

REACTIONS (2)
  - Hypersensitivity [None]
  - Maternal exposure during pregnancy [None]
